FAERS Safety Report 9407191 (Version 3)
Quarter: 2014Q1

REPORT INFORMATION
  Report Type: Report from Study
  Country: US (occurrence: US)
  Receive Date: 20130718
  Receipt Date: 20140218
  Transmission Date: 20141002
  Serious: Yes (Hospitalization, Other)
  Sender: FDA-Public Use
  Company Number: US-ELI_LILLY_AND_COMPANY-US201307004006

PATIENT
  Age: 71 Year
  Sex: Female

DRUGS (2)
  1. TERIPARATIDE [Suspect]
     Indication: OSTEOPOROSIS
     Dosage: UNK, QD
     Route: 065
     Dates: start: 201303
  2. TERIPARATIDE [Suspect]
     Dosage: UNK, QD
     Route: 065

REACTIONS (7)
  - Lung neoplasm malignant [Unknown]
  - Hernia [Unknown]
  - Injection site pain [Unknown]
  - Dyspnoea [Unknown]
  - Overdose [Unknown]
  - Muscle spasms [Unknown]
  - Inappropriate schedule of drug administration [Unknown]
